FAERS Safety Report 4643957-6 (Version None)
Quarter: 2005Q2

REPORT INFORMATION
  Report Type: 
  Country: None (occurrence: None)
  Receive Date: 20050418
  Receipt Date: 20050325
  Transmission Date: 20051028
  Serious: Yes (Hospitalization)
  Sender: FDA-Public Use
  Company Number: 602480

PATIENT
  Sex: Male
  Weight: 59 kg

DRUGS (1)
  1. BUMINATE [Suspect]
     Indication: NEPHROTIC SYNDROME
     Dosage: 100 ML; QD; INTRAVENOUS
     Route: 042
     Dates: start: 20050213

REACTIONS (3)
  - ABDOMINAL PAIN [None]
  - SEPSIS [None]
  - WHITE BLOOD CELL COUNT DECREASED [None]
